FAERS Safety Report 5917583-2 (Version None)
Quarter: 2008Q4

REPORT INFORMATION
  Report Type: 
  Country: None (occurrence: None)
  Receive Date: 20081014
  Receipt Date: 20081006
  Transmission Date: 20090506
  Serious: Yes (Hospitalization, Other)
  Sender: FDA-Public Use
  Company Number: JP-AVENTIS-200612648JP

PATIENT
  Sex: Female

DRUGS (7)
  1. LANTUS [Suspect]
     Dosage: DOSE: 8 UNIT
     Route: 058
  2. LANTUS [Suspect]
     Dosage: DOSE: 7 UNITS
     Route: 058
     Dates: end: 20081005
  3. LANTUS [Suspect]
     Dosage: DOSE: 5 UNITS
     Route: 058
     Dates: start: 20081006, end: 20081006
  4. OPTICLIK (INSULIN INJECTION PEN) [Suspect]
     Dates: end: 20081006
  5. LANTUS [Suspect]
     Dosage: DOSE: 2 UNITS
     Route: 058
     Dates: start: 20081006, end: 20081006
  6. LANTUS [Suspect]
     Dosage: DOSE: 7UNITES
     Route: 058
  7. PENFILL R [Concomitant]
     Route: 058

REACTIONS (5)
  - ACCIDENTAL OVERDOSE [None]
  - ASTHENIA [None]
  - BLOOD GLUCOSE INCREASED [None]
  - DIZZINESS [None]
  - HYPOGLYCAEMIA [None]
